FAERS Safety Report 9485504 (Version 4)
Quarter: 2013Q4

REPORT INFORMATION
  Report Type: Spontaneous
  Country: US (occurrence: US)
  Receive Date: 20130829
  Receipt Date: 20131024
  Transmission Date: 20140711
  Serious: Yes (Other)
  Sender: FDA-Public Use
  Company Number: US-BIOGENIDEC-2013BI078373

PATIENT
  Age: 62 Year
  Sex: Female
  Weight: 83 kg

DRUGS (22)
  1. TECFIDERA [Suspect]
     Indication: MULTIPLE SCLEROSIS
     Route: 048
     Dates: start: 20130617, end: 20130624
  2. TECFIDERA [Suspect]
     Indication: MULTIPLE SCLEROSIS
     Route: 048
     Dates: start: 20130625, end: 20130705
  3. LOSARTAN [Concomitant]
  4. CALCIUM CARBONATE [Concomitant]
     Route: 048
  5. DIAZEPAM [Concomitant]
  6. AVONEX [Concomitant]
  7. PERCOCET [Concomitant]
  8. CLONAZEPAM [Concomitant]
  9. TIZANIDINE [Concomitant]
  10. MULTIVITAMIN [Concomitant]
     Route: 048
  11. AMLODIPINE [Concomitant]
  12. METOPROLOL SUCCINATE ER [Concomitant]
  13. NITROSTAT [Concomitant]
     Route: 060
  14. COLESTID [Concomitant]
  15. DUO-NEB [Concomitant]
  16. ALPHAGAN P [Concomitant]
  17. LUMIGAN [Concomitant]
  18. PROVENTIL [Concomitant]
  19. SERTRALINE [Concomitant]
  20. AMITRIPTYLINE [Concomitant]
  21. SYMBICORT [Concomitant]
  22. AMANTADINE [Concomitant]

REACTIONS (4)
  - Renal failure acute [Recovered/Resolved]
  - Dehydration [Recovered/Resolved]
  - Nausea [Recovered/Resolved]
  - Urinary hesitation [Recovered/Resolved]
